FAERS Safety Report 14854386 (Version 1)
Quarter: 2018Q2

REPORT INFORMATION
  Report Type: Other
  Country: IN (occurrence: IN)
  Receive Date: 20180507
  Receipt Date: 20180507
  Transmission Date: 20180711
  Serious: Yes (Other)
  Sender: FDA-Public Use
  Company Number: IN-MERZ NORTH AMERICA, INC.-18MRZ-00204

PATIENT
  Age: 59 Year
  Sex: Female

DRUGS (2)
  1. XEOMIN [Suspect]
     Active Substance: INCOBOTULINUMTOXINA
     Indication: LACRIMATION INCREASED
     Dosage: 5 UNITS TOTAL
  2. VALACYCLOVIR [Concomitant]
     Active Substance: VALACYCLOVIR HYDROCHLORIDE
     Indication: PROPHYLAXIS
     Dosage: 500 MG  ONCE DAILY
     Route: 048

REACTIONS (4)
  - Ophthalmic herpes simplex [Recovered/Resolved]
  - Off label use [Recovered/Resolved]
  - Herpes simplex [Recovered/Resolved]
  - Eyelid ptosis [Recovered/Resolved]
